FAERS Safety Report 18468243 (Version 3)
Quarter: 2021Q2

REPORT INFORMATION
  Report Type: Spontaneous
  Country: US (occurrence: US)
  Receive Date: 20201105
  Receipt Date: 20210413
  Transmission Date: 20210717
  Serious: Yes (Other)
  Sender: FDA-Public Use
  Company Number: US-009507513-1901USA000984

PATIENT
  Sex: Female
  Weight: 54.1 kg

DRUGS (2)
  1. ZOSTAVAX [Suspect]
     Active Substance: VARICELLA-ZOSTER VIRUS STRAIN OKA/MERCK LIVE ANTIGEN
     Indication: PROPHYLAXIS
     Route: 058
     Dates: start: 20120827
  2. STERILE DILUENT (WATER) [Suspect]
     Active Substance: WATER
     Indication: PROPHYLAXIS
     Dosage: UNK, ONCE, AS DILUENT FOR VACCINATION WITH ZOSTER VACCINE LIVE (ZOSTAVAX)
     Route: 058
     Dates: start: 20120827, end: 20120827

REACTIONS (11)
  - Sinusitis [Unknown]
  - Hypertension [Recovered/Resolved]
  - Immunodeficiency [Unknown]
  - Vaccination failure [Unknown]
  - Arthropod bite [Unknown]
  - Essential tremor [Unknown]
  - Lower limb fracture [Unknown]
  - Persistent depressive disorder [Recovering/Resolving]
  - Stress [Unknown]
  - Herpes zoster [Recovered/Resolved]
  - Genital herpes simplex [Unknown]

NARRATIVE: CASE EVENT DATE: 20161123
